FAERS Safety Report 8168545-9 (Version None)
Quarter: 2012Q1

REPORT INFORMATION
  Report Type: 
  Country: None (occurrence: None)
  Receive Date: 20120227
  Receipt Date: 20120227
  Transmission Date: 20120608
  Serious: Yes (Death)
  Sender: FDA-Public Use
  Company Number: None

PATIENT
  Age: 22 Year
  Sex: Female
  Weight: 72.574 kg

DRUGS (2)
  1. ZOLPIDEM [Concomitant]
     Dosage: 1 TABLET @ BEDTIME
     Dates: start: 20101111, end: 20101113
  2. CITALOPRAM HYDROBROMIDE [Suspect]
     Indication: DEPRESSION
     Dosage: 1 TABLET
     Dates: start: 20101111, end: 20101115

REACTIONS (4)
  - AMNESIA [None]
  - DRUG INTERACTION [None]
  - OVERDOSE [None]
  - CONFUSIONAL STATE [None]
